FAERS Safety Report 9210227 (Version 1)
Quarter: 2013Q2

REPORT INFORMATION
  Report Type: Spontaneous
  Country: AU (occurrence: AU)
  Receive Date: 20130404
  Receipt Date: 20130404
  Transmission Date: 20140414
  Serious: Yes (Death, Other)
  Sender: FDA-Public Use
  Company Number: AU-BAXTER-2013BAX011332

PATIENT
  Age: 39 Year
  Sex: Male

DRUGS (1)
  1. DIANEAL PD-4 PERITONEAL DIALYSIS SOLUTION WITH 1.5% W_V GLUCOSE LOW CA [Suspect]
     Indication: PERITONEAL DIALYSIS
     Route: 033
     Dates: end: 20130325

REACTIONS (2)
  - Death [Fatal]
  - Transplant failure [Unknown]
